FAERS Safety Report 5845006-0 (Version None)
Quarter: 2008Q3

REPORT INFORMATION
  Report Type: 
  Country: None (occurrence: None)
  Receive Date: 20080814
  Receipt Date: 20080807
  Transmission Date: 20090109
  Serious: Yes (Hospitalization)
  Sender: FDA-Public Use
  Company Number: JP-BRISTOL-MYERS SQUIBB COMPANY-14237739

PATIENT
  Age: 59 Year
  Sex: Male

DRUGS (3)
  1. BRIPLATIN [Suspect]
     Indication: GASTRIC CANCER
     Route: 013
  2. MITOMYCIN [Suspect]
     Indication: GASTRIC CANCER
     Route: 013
  3. MITOMYCIN [Suspect]
     Indication: METASTASES TO LIVER
     Route: 013

REACTIONS (1)
  - ANAPHYLACTIC SHOCK [None]
